FAERS Safety Report 6095323-7 (Version None)
Quarter: 2009Q1

REPORT INFORMATION
  Report Type: 
  Country: None (occurrence: None)
  Receive Date: 20090227
  Receipt Date: 20080307
  Transmission Date: 20090719
  Serious: No
  Sender: FDA-Public Use
  Company Number: A0714078A

PATIENT
  Age: 28 Year
  Sex: Female

DRUGS (2)
  1. LAMICTAL [Suspect]
     Indication: ANXIETY
     Dosage: 200MG PER DAY
     Route: 048
     Dates: start: 20071206
  2. VITAMIN B COMPLEX CAP [Concomitant]

REACTIONS (4)
  - ABSCESS OF EYELID [None]
  - DRY SKIN [None]
  - ERYTHEMA [None]
  - RASH [None]
